FAERS Safety Report 11812760 (Version 1)
Quarter: 2015Q4

REPORT INFORMATION
  Report Type: Spontaneous
  Country: DE (occurrence: DE)
  Receive Date: 20151209
  Receipt Date: 20151209
  Transmission Date: 20160305
  Serious: Yes (Congenital Anomaly)
  Sender: FDA-Public Use
  Company Number: DE-SUN PHARMACEUTICAL INDUSTRIES LTD-2015RR-107334

PATIENT

DRUGS (5)
  1. PRESINOL [Concomitant]
     Active Substance: METHYLDOPA
     Indication: HYPERTENSION
     Dosage: 250 MG, BID; 7-7.5 GESTATIONAL WEEK
     Route: 064
     Dates: start: 20141217, end: 20141222
  2. METOPROLOL [Suspect]
     Active Substance: METOPROLOL
     Indication: HYPERTENSION
     Dosage: 100 MG, BID; 0-22 GESTATIONAL WEEK
     Route: 064
     Dates: start: 20141029, end: 20150401
  3. NASENSPRAY - RATIOPHARM (KINDER) [Concomitant]
     Indication: RHINITIS
     Dosage: IN THE BEGININNING OF DECEMBER FOR ABOUT A WEEK
     Route: 064
  4. MIFEGYNE [Concomitant]
     Active Substance: MIFEPRISTONE
     Indication: LABOUR INDUCTION
     Dosage: 21.6-21.6 GESTATIONAL WEEK
     Route: 064
     Dates: start: 20150331, end: 20150331
  5. FOLIO FORTE [Concomitant]
     Active Substance: FOLIC ACID\VITAMINS
     Indication: PROPHYLAXIS OF NEURAL TUBE DEFECT
     Dosage: 0.8 MG/D, 0-22 GESTATIONAL WEEK
     Route: 064
     Dates: start: 20141029, end: 20150401

REACTIONS (3)
  - Arnold-Chiari malformation [Not Recovered/Not Resolved]
  - Spina bifida [Not Recovered/Not Resolved]
  - Meningomyelocele [Not Recovered/Not Resolved]
